FAERS Safety Report 24684163 (Version 1)
Quarter: 2024Q4

REPORT INFORMATION
  Report Type: Spontaneous
  Country: US (occurrence: US)
  Receive Date: 20241202
  Receipt Date: 20241202
  Transmission Date: 20250115
  Serious: No
  Sender: AMGEN
  Company Number: US-AMGEN-USASP2024232361

PATIENT
  Age: 86 Year
  Sex: Female

DRUGS (3)
  1. NEULASTA [Suspect]
     Active Substance: PEGFILGRASTIM
     Indication: Prophylaxis
     Dosage: 6 MILLIGRAM, QMO ( 24 HOURS AFTER CHEMOTHERAPY WHEN NEEDED EVERY 14 DAYS)
     Route: 058
  2. NEULASTA [Suspect]
     Active Substance: PEGFILGRASTIM
     Dosage: 6 MILLIGRAM, Q2WK ( 24 HOURS AFTER CHEMOTHERAPY WHEN NEEDED EVERY 14 DAYS)
     Route: 058
     Dates: start: 2024
  3. IRINOTECAN [Suspect]
     Active Substance: IRINOTECAN
     Indication: Ovarian cancer stage IV
     Dosage: Q2WK
     Route: 065
     Dates: start: 202406

REACTIONS (4)
  - Oedema peripheral [Not Recovered/Not Resolved]
  - Neutrophil count increased [Unknown]
  - Neutrophil percentage increased [Unknown]
  - Neutrophil count decreased [Unknown]

NARRATIVE: CASE EVENT DATE: 20240601
